FAERS Safety Report 9248458 (Version 1)
Quarter: 2013Q1

REPORT INFORMATION
  Report Type: Spontaneous
  Country: US (occurrence: None)
  Receive Date: 20130305
  Receipt Date: 20130305
  Transmission Date: 20140127
  Serious: Yes (Other)
  Sender: FDA-Public Use
  Company Number: 163-21880-12092859

PATIENT
  Age: 68 Year
  Sex: Female
  Weight: 72.58 kg

DRUGS (5)
  1. REVLIMID [Suspect]
     Indication: PLASMA CELL MYELOMA
     Route: 048
     Dates: start: 200912
  2. VELCADE [Suspect]
     Indication: PLASMA CELL MYELOMA
     Dates: end: 20120913
  3. DEXAMETHASONE (DEXAMETHASONE) [Concomitant]
  4. ZOMETA (ZOLEDRONIC ACID) [Concomitant]
  5. ALOXI (PALONSETREON [Concomitant]

REACTIONS (1)
  - Pneumonitis [None]
